FAERS Safety Report 16731014 (Version 6)
Quarter: 2020Q2

REPORT INFORMATION
  Report Type: Spontaneous
  Country: US (occurrence: US)
  Receive Date: 20190822
  Receipt Date: 20200505
  Transmission Date: 20200713
  Serious: No
  Sender: FDA-Public Use
  Company Number: US-PFIZER INC-2019358674

PATIENT
  Age: 83 Year
  Sex: Female
  Weight: 73 kg

DRUGS (4)
  1. IBRANCE [Suspect]
     Active Substance: PALBOCICLIB
     Dosage: 75 MG, CYCLIC (ADMINISTER ON DAYS 1 THROUGH 14 OF A 28-DAY TREATMENT CYCLE)
  2. IBRANCE [Suspect]
     Active Substance: PALBOCICLIB
     Indication: BREAST CANCER
     Dosage: 100 MG, 1X/DAY
     Route: 048
     Dates: start: 20190801
  3. IBRANCE [Suspect]
     Active Substance: PALBOCICLIB
     Dosage: 100 MG, 1X/DAY
     Route: 048
     Dates: end: 20190815
  4. FASLODEX [Concomitant]
     Active Substance: FULVESTRANT
     Dosage: UNK [2 SHOTS]

REACTIONS (4)
  - Blood count abnormal [Not Recovered/Not Resolved]
  - White blood cell count decreased [Unknown]
  - Platelet count decreased [Unknown]
  - Decreased immune responsiveness [Unknown]

NARRATIVE: CASE EVENT DATE: 2019
